FAERS Safety Report 5250431-5 (Version None)
Quarter: 2007Q1

REPORT INFORMATION
  Report Type: 
  Country: None (occurrence: None)
  Receive Date: 20070228
  Receipt Date: 20060413
  Transmission Date: 20070707
  Serious: No
  Sender: FDA-Public Use
  Company Number: US-GLAXOSMITHKLINE-A0601692A

PATIENT
  Age: 13 Year
  Sex: Female

DRUGS (5)
  1. LAMICTAL [Suspect]
     Indication: BIPOLAR DISORDER
     Dosage: 25MG PER DAY
     Route: 048
     Dates: start: 20050901
  2. LEXAPRO [Suspect]
     Indication: DEPRESSION
     Dosage: 5MG PER DAY
     Route: 048
     Dates: start: 20050901, end: 20060323
  3. STRATTERA [Suspect]
     Dosage: 80MG PER DAY
     Route: 048
  4. ZYPREXA [Suspect]
     Dosage: 2.5MG PER DAY
     Route: 048
     Dates: start: 20060324
  5. NO CONCURRENT MEDICATION [Concomitant]

REACTIONS (2)
  - ABNORMAL BEHAVIOUR [None]
  - DRUG INEFFECTIVE [None]
